FAERS Safety Report 9604068 (Version 1)
Quarter: 2013Q4

REPORT INFORMATION
  Report Type: Report from Study
  Country: CA (occurrence: CA)
  Receive Date: 20131008
  Receipt Date: 20131008
  Transmission Date: 20140711
  Serious: Yes (Other)
  Sender: FDA-Public Use
  Company Number: CA-ROCHE-1285264

PATIENT
  Sex: Female
  Weight: 57.6 kg

DRUGS (16)
  1. RITUXAN [Suspect]
     Indication: MIXED CONNECTIVE TISSUE DISEASE
     Dosage: DAY 1, DAY 15
     Route: 042
     Dates: start: 20111221
  2. CYCLOPHOSPHAMIDE [Suspect]
     Indication: PRODUCT USED FOR UNKNOWN INDICATION
     Route: 042
     Dates: start: 201107
  3. PREDNISONE [Suspect]
     Indication: PRODUCT USED FOR UNKNOWN INDICATION
     Route: 065
  4. DIPHENHYDRAMINE HCL [Concomitant]
     Indication: PREMEDICATION
     Route: 048
     Dates: start: 20111221
  5. ACETAMINOPHEN [Concomitant]
     Indication: PREMEDICATION
     Route: 048
     Dates: start: 20111221
  6. METHYLPREDNISOLONE [Concomitant]
     Indication: PREMEDICATION
     Route: 042
     Dates: start: 20111221
  7. ADALAT [Concomitant]
  8. WARFARIN [Concomitant]
  9. RABEPRAZOLE [Concomitant]
  10. OMEGA 3 [Concomitant]
  11. EFFEXOR [Concomitant]
  12. TYLENOL [Concomitant]
     Route: 065
  13. SULFATRIM DS [Concomitant]
  14. FOSAMAX [Concomitant]
  15. BUTRANS [Concomitant]
     Dosage: PATCH, 10 MG/HR
     Route: 062
  16. VITAMIN B12 [Concomitant]

REACTIONS (4)
  - Basal cell carcinoma [Unknown]
  - Bladder cancer [Unknown]
  - Neuralgia [Not Recovered/Not Resolved]
  - Weight decreased [Not Recovered/Not Resolved]
